FAERS Safety Report 19186118 (Version 1)
Quarter: 2021Q2

REPORT INFORMATION
  Report Type: Spontaneous
  Country: BR (occurrence: BR)
  Receive Date: 20210427
  Receipt Date: 20210427
  Transmission Date: 20210717
  Serious: Yes (Hospitalization, Other)
  Sender: FDA-Public Use
  Company Number: BR-NOVOPROD-806438

PATIENT
  Age: 20 Year
  Sex: Male
  Weight: 37 kg

DRUGS (1)
  1. INSULATARD HM [Suspect]
     Active Substance: INSULIN HUMAN
     Indication: PRODUCT USED FOR UNKNOWN INDICATION
     Dosage: 95 IU, QD (40IU?40IU??15IU)
     Route: 065

REACTIONS (7)
  - Crying [Recovering/Resolving]
  - Anhedonia [Recovering/Resolving]
  - Blood glucose fluctuation [Recovering/Resolving]
  - Hypoglycaemia [Recovering/Resolving]
  - Paraesthesia [Recovering/Resolving]
  - Suicidal ideation [Recovering/Resolving]
  - Weight decreased [Unknown]
